FAERS Safety Report 6179940-1 (Version None)
Quarter: 2009Q2

REPORT INFORMATION
  Report Type: 
  Country: None (occurrence: None)
  Receive Date: 20090505
  Receipt Date: 20090428
  Transmission Date: 20091009
  Serious: Yes (Hospitalization, Other)
  Sender: FDA-Public Use
  Company Number: PHEH2009US03898

PATIENT
  Sex: Male

DRUGS (3)
  1. CLOZARIL [Suspect]
     Indication: SCHIZOPHRENIA
     Dosage: UNK
  2. NEURONTIN [Suspect]
     Dosage: 600 MG, QID
     Route: 048
  3. VISTARIL [Suspect]

REACTIONS (13)
  - APHASIA [None]
  - CONFUSIONAL STATE [None]
  - CONSTIPATION [None]
  - CONVULSION [None]
  - DEHYDRATION [None]
  - DIET REFUSAL [None]
  - DRUG INEFFECTIVE [None]
  - DYSGEUSIA [None]
  - HEART RATE INCREASED [None]
  - HEART RATE IRREGULAR [None]
  - INCONTINENCE [None]
  - PYREXIA [None]
  - RENAL FAILURE [None]
